FAERS Safety Report 5207928-3 (Version None)
Quarter: 2007Q1

REPORT INFORMATION
  Report Type: 
  Country: None (occurrence: None)
  Receive Date: 20070110
  Receipt Date: 20061026
  Transmission Date: 20070707
  Serious: Yes (Other)
  Sender: FDA-Public Use
  Company Number: 100#01#2006-02823

PATIENT
  Age: 68 Year
  Sex: Male

DRUGS (1)
  1. AZITHROMYCIN [Suspect]
     Indication: PNEUMONIA
     Dosage: 500 MG
     Route: 042
     Dates: start: 20061012, end: 20061012

REACTIONS (6)
  - ASTHENIA [None]
  - COLD SWEAT [None]
  - HYPOTENSION [None]
  - INFUSION RELATED REACTION [None]
  - PALLOR [None]
  - TACHYCARDIA [None]
